FAERS Safety Report 8793237 (Version 2)
Quarter: 2012Q4

REPORT INFORMATION
  Report Type: Report from Study
  Country: NL (occurrence: NL)
  Receive Date: 20120918
  Receipt Date: 20121207
  Transmission Date: 20130627
  Serious: Yes (Death, Hospitalization, Other)
  Sender: FDA-Public Use
  Company Number: NL-GENZYME-CLOF-1002264

PATIENT
  Age: 25 Year
  Sex: Male
  Weight: 144 kg

DRUGS (24)
  1. EVOLTRA [Suspect]
     Indication: ACUTE LYMPHOCYTIC LEUKAEMIA
     Dosage: 79 mg, qd
     Route: 042
     Dates: start: 20120711, end: 20120711
  2. EVOLTRA [Suspect]
     Dosage: 79 mg, qd
     Route: 042
     Dates: start: 20120712, end: 20120712
  3. EVOLTRA [Suspect]
     Dosage: 79 mg, qd
     Route: 042
     Dates: start: 20120713, end: 20120713
  4. EVOLTRA [Suspect]
     Dosage: 79 mg, qd
     Route: 042
     Dates: start: 20120714, end: 20120714
  5. EVOLTRA [Suspect]
     Dosage: 79 mg, qd
     Route: 042
     Dates: start: 20120715, end: 20120715
  6. PEG-ASPARAGINASE [Suspect]
     Indication: ACUTE LYMPHOCYTIC LEUKAEMIA
     Dosage: 2550 iu, UNK
     Route: 042
     Dates: start: 20120718
  7. DAUNORUBICIN [Suspect]
     Indication: ACUTE LYMPHOCYTIC LEUKAEMIA
     Dosage: 105 mg, UNK
     Route: 042
     Dates: start: 20120725
  8. METHOTREXATE [Suspect]
     Indication: ACUTE LYMPHOCYTIC LEUKAEMIA
     Dosage: 15 mg, UNK
     Route: 037
     Dates: start: 20120723
  9. DEXAMETHASONE [Suspect]
     Indication: ACUTE LYMPHOCYTIC LEUKAEMIA
     Dosage: 4 mg, UNK
     Route: 037
     Dates: start: 20120723
  10. PREDNISOLONE [Suspect]
     Indication: ACUTE LYMPHOCYTIC LEUKAEMIA
     Dosage: 80 mg, UNK
     Route: 048
     Dates: start: 20120711, end: 20120711
  11. PREDNISOLONE [Suspect]
     Dosage: 80 mg, UNK
     Route: 048
     Dates: start: 20120712, end: 20120712
  12. PREDNISOLONE [Suspect]
     Dosage: 80 mg, UNK
     Route: 048
     Dates: start: 20120713, end: 20120713
  13. PREDNISOLONE [Suspect]
     Dosage: 80 mg, UNK
     Route: 048
     Dates: start: 20120714, end: 20120714
  14. PREDNISOLONE [Suspect]
     Dosage: 80 mg, UNK
     Route: 048
     Dates: start: 20120715, end: 20120715
  15. PREDNISOLONE [Suspect]
     Dosage: 80 mg, UNK
     Route: 048
     Dates: start: 20120716, end: 20120716
  16. PREDNISOLONE [Suspect]
     Dosage: 80 mg, UNK
     Route: 048
     Dates: start: 20120717, end: 20120717
  17. G-CSF [Suspect]
     Indication: ACUTE LYMPHOCYTIC LEUKAEMIA
     Dosage: 480 mcg, UNK
     Route: 058
     Dates: start: 20120719
  18. VINCRISTINE [Suspect]
     Indication: ACUTE LYMPHOCYTIC LEUKAEMIA
     Dosage: 2 mg, UNK
     Route: 042
     Dates: start: 20120718
  19. FLUCONAZOL [Concomitant]
     Indication: PROPHYLAXIS
     Dosage: 400 mg, UNK
     Route: 048
     Dates: start: 20120712, end: 20120802
  20. GRANISETRON [Concomitant]
     Indication: PRODUCT USED FOR UNKNOWN INDICATION
     Dosage: 1 mg, UNK
     Route: 042
     Dates: start: 20120711
  21. GRANISETRON [Concomitant]
     Dosage: 1 mg, UNK
     Route: 042
     Dates: start: 20120712
  22. GRANISETRON [Concomitant]
     Dosage: 1 mg, UNK
     Route: 042
     Dates: start: 20120713
  23. GRANISETRON [Concomitant]
     Dosage: 1 mg, UNK
     Route: 042
     Dates: start: 20120714
  24. GRANISETRON [Concomitant]
     Dosage: 1 mg, UNK
     Route: 042
     Dates: start: 20120715

REACTIONS (9)
  - Multi-organ failure [Fatal]
  - Pulmonary oedema [Unknown]
  - Pleural effusion [Unknown]
  - Hepatic failure [Fatal]
  - Respiratory failure [Fatal]
  - Hypercapnia [Not Recovered/Not Resolved]
  - Dyspnoea [Not Recovered/Not Resolved]
  - Dehydration [Recovered/Resolved]
  - Sinus tachycardia [Recovered/Resolved]
